FAERS Safety Report 14668333 (Version 1)
Quarter: 2018Q1

REPORT INFORMATION
  Report Type: Spontaneous
  Country: US (occurrence: US)
  Receive Date: 20180321
  Receipt Date: 20180321
  Transmission Date: 20180509
  Serious: Yes (Hospitalization)
  Sender: FDA-Public Use
  Company Number: None

PATIENT
  Age: 34 Year
  Sex: Female
  Weight: 45 kg

DRUGS (5)
  1. LORAZEPAM. [Concomitant]
     Active Substance: LORAZEPAM
  2. VITAMIN D [Concomitant]
     Active Substance: CHOLECALCIFEROL
  3. VITAMIN B6 [Concomitant]
     Active Substance: PYRIDOXINE HYDROCHLORIDE
  4. HAIR/SKIN/NAILS VITAMIN [Concomitant]
  5. CAPECITABINE. [Suspect]
     Active Substance: CAPECITABINE
     Indication: CHEMOTHERAPY
     Dosage: ?          QUANTITY:3 TABLET(S);?
     Route: 048
     Dates: start: 20171217, end: 20180312

REACTIONS (9)
  - Urinary incontinence [None]
  - Fatigue [None]
  - Arteriospasm coronary [None]
  - Palmar-plantar erythrodysaesthesia syndrome [None]
  - Vomiting [None]
  - Dizziness [None]
  - Fall [None]
  - Nausea [None]
  - Pulse absent [None]

NARRATIVE: CASE EVENT DATE: 20180312
